FAERS Safety Report 21311805 (Version 1)
Quarter: 2022Q3

REPORT INFORMATION
  Report Type: Spontaneous
  Country: US (occurrence: None)
  Receive Date: 20220909
  Receipt Date: 20220909
  Transmission Date: 20221027
  Serious: No
  Sender: FDA-Public Use
  Company Number: US-ARIS GLOBAL-202203-0436

PATIENT
  Sex: Female

DRUGS (25)
  1. OXERVATE [Suspect]
     Active Substance: CENEGERMIN-BKBJ
     Indication: Neurotrophic keratopathy
     Route: 047
     Dates: start: 20220303
  2. ASPIRIN [Concomitant]
     Active Substance: ASPIRIN
  3. MINERALS\VITAMINS [Concomitant]
     Active Substance: MINERALS\VITAMINS
  4. MINERALS\VITAMINS [Concomitant]
     Active Substance: MINERALS\VITAMINS
     Dosage: 4-300-250
  5. ALENDRONATE SODIUM [Concomitant]
     Active Substance: ALENDRONATE SODIUM
  6. SIMVASTATIN [Concomitant]
     Active Substance: SIMVASTATIN
  7. LISINOPRIL AND HYDROCHLOROTHIAZIDE [Concomitant]
     Active Substance: HYDROCHLOROTHIAZIDE\LISINOPRIL
  8. REFRESH TEARS [Concomitant]
     Active Substance: CARBOXYMETHYLCELLULOSE SODIUM
  9. ARTIFICIAL TEARS [Concomitant]
     Active Substance: GLYCERIN\HYPROMELLOSES\POLYETHYLENE GLYCOL 400
     Dosage: 0.1%-0.3%
  10. VALGANCICLOVIR HYDROCHLORIDE [Concomitant]
     Active Substance: VALGANCICLOVIR HYDROCHLORIDE
  11. COMBIGAN [Concomitant]
     Active Substance: BRIMONIDINE TARTRATE\TIMOLOL MALEATE
     Dosage: 0.2%-0.5%
  12. DIFLUPREDNATE [Concomitant]
     Active Substance: DIFLUPREDNATE
  13. DUREZOL [Concomitant]
     Active Substance: DIFLUPREDNATE
  14. TIMOLOL BRIMONI DORZOL LATANOP [Concomitant]
  15. VITAMINS [Concomitant]
     Active Substance: VITAMINS
  16. REFRESH TEARS [Concomitant]
     Active Substance: CARBOXYMETHYLCELLULOSE SODIUM
  17. ASPIRIN [Concomitant]
     Active Substance: ASPIRIN
  18. DIFLUPREDNATE [Concomitant]
     Active Substance: DIFLUPREDNATE
  19. FOLIC ACID [Concomitant]
     Active Substance: FOLIC ACID
  20. ALENDRONATE SODIUM [Concomitant]
     Active Substance: ALENDRONATE SODIUM
  21. ARTIFICIAL TEARS [Concomitant]
     Active Substance: GLYCERIN\HYPROMELLOSES\POLYETHYLENE GLYCOL 400
  22. SIMVASTATIN [Concomitant]
     Active Substance: SIMVASTATIN
  23. MINERALS\VITAMINS [Concomitant]
     Active Substance: MINERALS\VITAMINS
  24. VALGANCICLOVIR HYDROCHLORIDE [Concomitant]
     Active Substance: VALGANCICLOVIR HYDROCHLORIDE
  25. LISINOPRIL AND HYDROCHLOROTHIAZIDE [Concomitant]
     Active Substance: HYDROCHLOROTHIAZIDE\LISINOPRIL

REACTIONS (5)
  - Eye irritation [Not Recovered/Not Resolved]
  - Asthenopia [Not Recovered/Not Resolved]
  - Vision blurred [Not Recovered/Not Resolved]
  - Drug ineffective [Unknown]
  - Eye pain [Unknown]
